FAERS Safety Report 10678535 (Version 3)
Quarter: 2015Q3

REPORT INFORMATION
  Report Type: Report from Study
  Country: JP (occurrence: None)
  Receive Date: 20141223
  Receipt Date: 20150819
  Transmission Date: 20151125
  Serious: Yes (Hospitalization, Other)
  Sender: FDA-Public Use
  Company Number: 2009JP002621

PATIENT
  Age: 52 Year
  Sex: Male
  Weight: 51 kg

DRUGS (85)
  1. VOLTAREN [Suspect]
     Active Substance: DICLOFENAC SODIUM
     Indication: PRODUCT USED FOR UNKNOWN INDICATION
     Route: 048
     Dates: start: 20091014, end: 20110125
  2. ACTEMRA [Concomitant]
     Active Substance: TOCILIZUMAB
  3. METHYCOBAL (MECOBALAMIN) [Concomitant]
  4. DEPAKENE-R (VALPROATE SODIUM) [Concomitant]
  5. OPALMON (LIMAPROST ALFADEX) [Concomitant]
  6. FERROMIA (FERROUS SODIUM CITRATE) [Concomitant]
  7. MUCOSTA (REBAMIPIDE) [Concomitant]
  8. TERNELIN (TIZANIDINE HYDROCHLORIDE) [Concomitant]
  9. SHAKUYAKUKANZOTO (GLYCYRRHIZA SPP. ROOT, PAEONIA LACTIFLORA ROOT) [Concomitant]
  10. BONOTEO (MINODRONIC ACID) [Concomitant]
  11. BAKUMONDOTO (GLYCYRRHIZA SPP. ROOT, OPHIOPOGON JAPONICUS TUBER, ORYZA SATIVA FRUIT, PANAX GINSENG ROOT, PINELLIA TERNATA TUBER, ZIZIPHUS JUJUBA VAR. INERMIS FRUIT) [Concomitant]
  12. GLYCYRON (DL-METHIONINE, GLYCINE, GLYCYRRHIZIC ACID) [Concomitant]
  13. PROGRAF [Suspect]
     Active Substance: TACROLIMUS\TACROLIMUS ANHYDROUS
     Indication: LUPUS NEPHRITIS
     Route: 048
     Dates: start: 20070704, end: 20070728
  14. BREDININ (MIZORIBINE) [Concomitant]
     Active Substance: MIZORIBINE
  15. MYSLEE (ZOLPIDEM) [Concomitant]
     Active Substance: ZOLPIDEM\ZOLPIDEM TARTRATE
  16. CELECOX (CELECOXIB) [Concomitant]
     Active Substance: CELECOXIB
  17. DOGMATYL (SULPIRIDE) [Concomitant]
  18. BAKTAR (SULFAMETHOXAZOLE, TRIMETHOPRIM) TABLET [Concomitant]
     Active Substance: SULFAMETHOXAZOLE\TRIMETHOPRIM
  19. NEUROTROPIN   (CYANOCOBALAMIN, LIDOCAINE HYDROCHLORIDE, PYRIDOXINE HYDROCHLORIDE, THIAMINE HYDROCHLORIDE) [Concomitant]
  20. PARIET (RABEPRAZOLE SODIUM) (20 MG, GASTRO-RESISTANT TABLET) (RABEPRAZOLE SODIUM) [Concomitant]
     Active Substance: RABEPRAZOLE SODIUM
  21. FESIN (SACCHARATED IRON OXIDE) [Concomitant]
  22. DAIKENCHUTO (PANAX GINSENG ROOT, ZANTHOXYLUM PIPERITUM PERICARP, ZINGIBER OFFICINALE PROCESSED RHIZOME) [Concomitant]
  23. OMEPRAL (OMEPRAZOLE) [Concomitant]
     Active Substance: OMEPRAZOLE
  24. MAGMITT (MAGNESIUM OXIDE) [Concomitant]
     Active Substance: MAGNESIUM OXIDE
  25. MAOTO (CINNAMOMUM CASSIA BARK, EPHEDRA SPP. HERB, GLYCYRRHIZA SPP. ROOT, PRUNIUS SPP. SEED) [Concomitant]
  26. BONALON [Concomitant]
     Active Substance: ALENDRONATE SODIUM
  27. GLAKAY (MENATETRENONE) [Concomitant]
  28. RIMATIL (BUCILLAMINE) [Concomitant]
  29. AZULFIDINE EN (SULFASALAZINE) [Concomitant]
  30. MUCOSOLVAN L (AMBROXOL HYDROCHLORIDE) [Concomitant]
  31. LASIX [Concomitant]
     Active Substance: FUROSEMIDE
  32. HANGESHASHINTO (COPTIS SPP. RHIZOME, GLYCYRRHIZA SPP. ROOT, PANAX GINSENG ROOT, PINELLIA TERNATA TUBER, SCUTELLARIA BAICALENSIS ROOT, ZINGIBER OFFICINALE PROCESSED RHIZOME, ZIZIPHUS JUJUBA VAR.  INERMIS FRUIT) [Concomitant]
  33. SELBEX (TEPRENONE) [Concomitant]
     Active Substance: TEPRENONE
  34. LANSOPRAZOLE. [Concomitant]
     Active Substance: LANSOPRAZOLE
  35. AMITIZA [Concomitant]
     Active Substance: LUBIPROSTONE
  36. TOLEDOMIN [Concomitant]
     Active Substance: MILNACIPRAN HYDROCHLORIDE
  37. GASMOTIN (MOSAPRIDE CITRATE) [Concomitant]
     Active Substance: MOSAPRIDE CITRATE
  38. FOSAMAC [Concomitant]
     Active Substance: ALENDRONATE SODIUM
  39. LAXOBERON (SODIUM PICOSULFATE) [Concomitant]
     Active Substance: SODIUM PICOSULFATE
  40. CEROCRAL (IFENPRODIL TARTRATE) [Concomitant]
  41. LYRICA [Concomitant]
     Active Substance: PREGABALIN
  42. LANSAP [Concomitant]
     Active Substance: AMOXICILLIN\CLARITHROMYCIN\LANSOPRAZOLE
  43. FERO-GRADUMET (FERROUS SULFATE) [Concomitant]
  44. SALIGREN (CEVIMELINE HYDROCHLORIDE) [Concomitant]
  45. REBAMIPIDE [Concomitant]
     Active Substance: REBAMIPIDE
  46. SARPOGRELATE HYDROCHLORIDE [Concomitant]
     Active Substance: SARPOGRELATE
  47. PREDONINE [Suspect]
     Active Substance: PREDNISOLONE\PREDNISOLONE ACETATE\PREDNISOLONE SODIUM SUCCINATE
     Indication: LUPUS NEPHRITIS
     Route: 048
     Dates: end: 20070718
  48. SOLANAX [Concomitant]
     Active Substance: ALPRAZOLAM
  49. LEUCOVORIN  (FOLINIC ACID) [Concomitant]
     Active Substance: LEUCOVORIN
  50. ANPLAG (SARPOGRELATE HYDROCHLORIDE) [Concomitant]
  51. TAKEPRON (LANSOPRAZOLE) [Concomitant]
     Active Substance: LANSOPRAZOLE
  52. MUCOSOLVAN (AMBROXOL HYDROCHLORIDE) [Concomitant]
  53. ALLERMIST (FLUTICASONE FUROATE) [Concomitant]
  54. ALLEGRA (FEXOFENADINE HYDROCHLORIDE) [Concomitant]
  55. UREPEARL (UREA) [Concomitant]
  56. URSO (URSODEOXYCHOLIC ACID) [Concomitant]
  57. RHEUMATREX  (METHOTREXATE) [Concomitant]
  58. GASCON (DIMETHICONE) [Concomitant]
     Active Substance: DIMETHICONE
  59. MAGNESIUM OXIDE (MAGNESIUM OXIDE) [Concomitant]
     Active Substance: MAGNESIUM OXIDE
  60. PURSENNID [Concomitant]
     Active Substance: SENNOSIDES A AND B
  61. FLOMOX  (CEFCAPENE PIVOXIL HYDROCHLORIDE) [Concomitant]
  62. BAYASPIRIN (ACETYLSALICYLIC ACID) (ACETYLSALICYLIC ACID) [Concomitant]
     Active Substance: ASPIRIN
  63. MEILAX (ETHYL LOFLAZEPATE) [Concomitant]
  64. PROSTANDIN (ALPROSTADIL) [Concomitant]
  65. SENNOSIDE  (SENNOSIDE A + B) [Concomitant]
  66. MAXALT (RIZATRIPTAN BENZOATE) [Concomitant]
     Active Substance: RIZATRIPTAN BENZOATE
  67. TRYPTANOL  (AMITRIPTYLINE HYDROCHLORIDE) [Concomitant]
  68. ALLOID G (SODIUM ALGINATE) [Concomitant]
  69. JZOLOFT (SERTRALINE HYDROCHLORIDE) [Concomitant]
  70. ROZEREM (RAMELTEON) [Concomitant]
  71. ADOAIR (FLUTICASONE PROPIONATE, SALMETEROL XINAFOATE) [Concomitant]
  72. BERAPROST NA (BERAPROST SODIUM) [Concomitant]
  73. METHYLPREDNISOLONE SODIUM SUCCINATE. [Concomitant]
     Active Substance: METHYLPREDNISOLONE SODIUM SUCCINATE
  74. SPIRIVA [Concomitant]
     Active Substance: TIOTROPIUM BROMIDE MONOHYDRATE
  75. RHUBARB (RHEUM PALMATUM) [Concomitant]
  76. MIYA BM (CLOSTRIDIUM BUTYRICUM) [Concomitant]
  77. MYONAL  (EPIRIZOLE HYDROCHLORIDE) [Concomitant]
  78. LOXONIN (LOXOPROFEN SODIUM) [Concomitant]
     Active Substance: LOXOPROFEN SODIUM
  79. WARFARIN (WARFARIN) [Concomitant]
     Active Substance: WARFARIN
  80. DORNER (BERAPROST) [Concomitant]
  81. ACDEAM (LYSOZYME) [Concomitant]
  82. MUCODYNE (CARBOCISTEINE) [Concomitant]
     Active Substance: CARBOCYSTEINE
  83. LIVOSTIN (LEVOCABASTINE HYDROCHLORIDE) [Concomitant]
  84. YOKUKANSANKACHIMPIHANGE (ANGELICA ACUTILOBA ROOT, ATRACTYLODES LANCEA RHIZOME, BUPLEURUM FALCATUM ROOT, CITRUS RETICULATA PEEL, CNIDIUM OFFICINALE RHIZOME, GLYCYRRHIZA SPP. ROOT, PINELLIA TERNATA TUBER, PORIA COCOS SCLEROTIUM, UNCARIA SPP. HOOK) [Concomitant]
  85. HIRUDOID (HEPARINOID) [Concomitant]

REACTIONS (20)
  - Decreased appetite [None]
  - Immunosuppressant drug level increased [None]
  - Hepatic function abnormal [None]
  - Psoriasis [None]
  - Vocal cord polyp [None]
  - Post herpetic neuralgia [None]
  - Chronic obstructive pulmonary disease [None]
  - Red blood cell count decreased [None]
  - Gastric cancer [None]
  - Myalgia [None]
  - Systemic lupus erythematosus [None]
  - Rhinitis allergic [None]
  - Nasopharyngitis [None]
  - Headache [None]
  - Skin ulcer [None]
  - Protein total decreased [None]
  - Gastritis erosive [None]
  - Iron deficiency anaemia [None]
  - Tremor [None]
  - Oedema peripheral [None]

NARRATIVE: CASE EVENT DATE: 20070731
